FAERS Safety Report 7354461-9 (Version None)
Quarter: 2011Q1

REPORT INFORMATION
  Report Type: 
  Country: None (occurrence: None)
  Receive Date: 20110316
  Receipt Date: 20110225
  Transmission Date: 20110831
  Serious: Yes (Hospitalization, Other)
  Sender: FDA-Public Use
  Company Number: US-BAYER-201035535NA

PATIENT
  Sex: Female
  Weight: 97.279 kg

DRUGS (9)
  1. SODIUM CHLORIDE [Concomitant]
     Indication: PNEUMONITIS
     Dosage: UNK
     Route: 042
     Dates: start: 20020410, end: 20020412
  2. SOLU-MEDROL [Concomitant]
     Indication: PNEUMONITIS
     Route: 042
  3. YASMIN [Suspect]
     Indication: ENDOMETRIOSIS
     Route: 048
     Dates: start: 20020401
  4. PREDNISONE [Concomitant]
     Dosage: 20 MG TAPERING TO 10 MG DAILY
     Route: 048
     Dates: start: 20020421, end: 20020423
  5. CEFTIN [Concomitant]
     Dosage: 250 MG, BID
  6. MULTI-VITAMIN [Concomitant]
     Dosage: UNK UNK, QD
  7. VITAMIN B6 [Concomitant]
     Dosage: UNK UNK, QD
  8. ANTIBIOTICS [Concomitant]
     Indication: PNEUMONITIS
     Dosage: UNK
     Route: 042
     Dates: start: 20020410, end: 20020412
  9. YAZ [Suspect]
     Indication: ENDOMETRIOSIS
     Route: 048
     Dates: start: 20020401

REACTIONS (2)
  - DEEP VEIN THROMBOSIS [None]
  - LIMB DISCOMFORT [None]
